FAERS Safety Report 13374927 (Version 1)
Quarter: 2017Q1

REPORT INFORMATION
  Report Type: Spontaneous
  Country: KR (occurrence: KR)
  Receive Date: 20170327
  Receipt Date: 20170327
  Transmission Date: 20170429
  Serious: Yes (Hospitalization, Other)
  Sender: FDA-Public Use
  Company Number: KR-SA-2017SA049623

PATIENT
  Age: 39 Year
  Sex: Female
  Weight: 66.4 kg

DRUGS (12)
  1. INSULIN GLULISINE [Suspect]
     Active Substance: INSULIN GLULISINE
     Indication: TYPE 2 DIABETES MELLITUS
     Dosage: BEFORE EVERY MEAL DOSE:10 UNIT(S)
     Route: 065
  2. DAPAGLIFLOZIN [Suspect]
     Active Substance: DAPAGLIFLOZIN
     Indication: DIABETES MELLITUS INADEQUATE CONTROL
     Route: 065
  3. OXYCODONE [Concomitant]
     Active Substance: OXYCODONE
     Indication: DIABETIC NEUROPATHY
  4. MAGNESIUM [Concomitant]
     Active Substance: MAGNESIUM
     Indication: CONSTIPATION
  5. INSULIN GLARGINE [Suspect]
     Active Substance: INSULIN GLARGINE
     Indication: TYPE 2 DIABETES MELLITUS
     Dosage: AFTER LUNCH DOSE:20 UNIT(S)
     Route: 065
  6. INSULIN GLARGINE [Suspect]
     Active Substance: INSULIN GLARGINE
     Indication: TYPE 2 DIABETES MELLITUS
     Dosage: AFTER LUNCH DOSE:22 UNIT(S)
     Route: 065
  7. INSULIN GLULISINE [Suspect]
     Active Substance: INSULIN GLULISINE
     Indication: TYPE 2 DIABETES MELLITUS
     Dosage: BEFORE EVERY MEAL DOSE:8 UNIT(S)
     Route: 065
  8. METFORMIN [Suspect]
     Active Substance: METFORMIN HYDROCHLORIDE
     Indication: TYPE 2 DIABETES MELLITUS
     Route: 048
  9. PREGABALIN. [Concomitant]
     Active Substance: PREGABALIN
     Indication: DIABETIC NEUROPATHY
  10. INSULIN GLARGINE [Suspect]
     Active Substance: INSULIN GLARGINE
     Indication: TYPE 2 DIABETES MELLITUS
     Dosage: AFTER LUNCH DOSE:20 UNIT(S)
     Route: 065
  11. INSULIN GLULISINE [Suspect]
     Active Substance: INSULIN GLULISINE
     Indication: TYPE 2 DIABETES MELLITUS
     Dosage: BEFORE EVERY MEAL DOSE:8 UNIT(S)
     Route: 065
  12. NALOXONE [Concomitant]
     Active Substance: NALOXONE
     Indication: DIABETIC NEUROPATHY

REACTIONS (18)
  - Diabetic ketoacidosis [Recovering/Resolving]
  - Abdominal pain [Recovering/Resolving]
  - Blood glucose abnormal [Recovering/Resolving]
  - Blood ketone body increased [Recovering/Resolving]
  - Blood glucose increased [Recovering/Resolving]
  - Drug ineffective [Unknown]
  - PO2 increased [Recovering/Resolving]
  - Diabetes mellitus inadequate control [Recovered/Resolved]
  - Blood pH decreased [Recovering/Resolving]
  - Blood bicarbonate decreased [Recovering/Resolving]
  - Vomiting [Recovering/Resolving]
  - Blood lactic acid increased [Recovering/Resolving]
  - Anion gap increased [Recovering/Resolving]
  - Blood ketone body decreased [Recovering/Resolving]
  - Insulin C-peptide decreased [Recovering/Resolving]
  - Glycosylated haemoglobin increased [Recovered/Resolved]
  - Hypoglycaemia [Not Recovered/Not Resolved]
  - Nausea [Recovering/Resolving]
